FAERS Safety Report 8810415 (Version 1)
Quarter: 2012Q4

REPORT INFORMATION
  Report Type: 
  Country: DE (occurrence: DE)
  Receive Date: 20120927
  Receipt Date: 20120927
  Transmission Date: 20130627
  Serious: Yes (Hospitalization)
  Sender: FDA-Public Use
  Company Number: DE-ABBOTT-12P-062-0983453-00

PATIENT
  Sex: Male
  Weight: 78.2 kg

DRUGS (5)
  1. ZEMPLAR [Suspect]
     Indication: HYPERPARATHYROIDISM SECONDARY
     Route: 048
     Dates: start: 20120609, end: 20120816
  2. CALCI-GRY [Suspect]
     Indication: HYPERPHOSPHATAEMIA
     Route: 048
     Dates: start: 201110
  3. DEKRISTOL [Suspect]
     Indication: CALCIUM DEFICIENCY
     Route: 048
     Dates: start: 201004, end: 20120816
  4. CALCITRIOL [Suspect]
     Indication: HYPERPARATHYROIDISM SECONDARY
     Route: 048
     Dates: start: 201112, end: 20120608
  5. TORASEMID [Concomitant]
     Indication: PRODUCT USED FOR UNKNOWN INDICATION

REACTIONS (3)
  - Confusional state [Recovered/Resolved]
  - Hypercalcaemia [Recovered/Resolved]
  - Haemodialysis [None]
